FAERS Safety Report 8251276-4 (Version None)
Quarter: 2012Q1

REPORT INFORMATION
  Report Type: 
  Country: None (occurrence: None)
  Receive Date: 20120321
  Receipt Date: 20101006
  Transmission Date: 20120608
  Serious: No
  Sender: FDA-Public Use
  Company Number: PHHY2010US67579

PATIENT
  Sex: Female

DRUGS (1)
  1. ILARIS [Suspect]
     Dosage: 150 MG X8 WEEKS, SUBCUTANEOUS
     Route: 058

REACTIONS (4)
  - RASH [None]
  - FAMILIAL COLD AUTOINFLAMMATORY SYNDROME [None]
  - CRYOPYRIN ASSOCIATED PERIODIC SYNDROME [None]
  - PYREXIA [None]
